FAERS Safety Report 7241292-3 (Version None)
Quarter: 2011Q1

REPORT INFORMATION
  Report Type: 
  Country: None (occurrence: None)
  Receive Date: 20110124
  Receipt Date: 20110113
  Transmission Date: 20110831
  Serious: Yes (Other)
  Sender: FDA-Public Use
  Company Number: B0693997A

PATIENT
  Age: 41 Year
  Sex: Male
  Weight: 53 kg

DRUGS (3)
  1. ZERIT [Suspect]
     Indication: ACQUIRED IMMUNODEFICIENCY SYNDROME
     Route: 048
     Dates: start: 20060411
  2. EPIVIR [Suspect]
     Indication: ACQUIRED IMMUNODEFICIENCY SYNDROME
     Dosage: 1200MG PER DAY
     Route: 048
     Dates: start: 20060411
  3. STOCRIN [Suspect]
     Indication: ACQUIRED IMMUNODEFICIENCY SYNDROME
     Dosage: 600MG PER DAY
     Route: 048
     Dates: start: 20060411

REACTIONS (2)
  - DISSEMINATED TUBERCULOSIS [None]
  - IMMUNE RECONSTITUTION SYNDROME [None]
